FAERS Safety Report 8598212-9 (Version None)
Quarter: 2012Q3

REPORT INFORMATION
  Report Type: 
  Country: None (occurrence: None)
  Receive Date: 20120816
  Receipt Date: 20120807
  Transmission Date: 20120928
  Serious: Yes (Hospitalization)
  Sender: FDA-Public Use
  Company Number: JP-CELGENEUS-087-50794-12081046

PATIENT
  Sex: Female
  Weight: 43 kg

DRUGS (27)
  1. VIDAZA [Suspect]
     Dosage: 100 MILLIGRAM
     Route: 041
     Dates: start: 20120213, end: 20120219
  2. FLUCONAZOLE [Concomitant]
     Route: 065
     Dates: end: 20120217
  3. SANDIMMUNE [Concomitant]
     Route: 065
     Dates: start: 20120218
  4. OMEPRAZOLE [Concomitant]
     Route: 065
     Dates: start: 20120218
  5. SCOPOLAMINE [Concomitant]
     Route: 065
     Dates: start: 20120214, end: 20120216
  6. ZOSYN [Concomitant]
     Route: 065
     Dates: start: 20120216, end: 20120218
  7. MORPHINE HYDROCHLORIDE HYDRATE [Concomitant]
     Route: 065
     Dates: start: 20120216, end: 20120227
  8. AMBISOME [Concomitant]
     Route: 065
     Dates: start: 20120218
  9. MORPHINE HYDROCHLORIDE HYDRATE [Concomitant]
     Route: 065
     Dates: start: 20120216
  10. ALOXI [Concomitant]
     Route: 065
     Dates: end: 20120217
  11. ACYCLOVIR [Concomitant]
     Route: 065
     Dates: end: 20120217
  12. NEORAL [Concomitant]
     Route: 065
     Dates: end: 20120217
  13. BECLOMETHASONE DIPROPIONATE [Concomitant]
     Route: 065
     Dates: start: 20120220, end: 20120322
  14. TARGOCID [Concomitant]
     Route: 065
     Dates: start: 20120227
  15. MEROPENEM [Concomitant]
     Route: 065
     Dates: start: 20120218, end: 20120229
  16. PENTAZOCINE LACTATE [Concomitant]
     Route: 065
     Dates: start: 20120205, end: 20120215
  17. PANTOL [Concomitant]
     Route: 065
     Dates: start: 20120218, end: 20120219
  18. HALOPERIDOL [Concomitant]
     Route: 065
     Dates: start: 20120222, end: 20120224
  19. RECOMODULIN [Concomitant]
     Route: 065
     Dates: start: 20120227, end: 20120303
  20. LANSOPRAZOLE [Concomitant]
     Route: 065
     Dates: end: 20120217
  21. SULFAMETHOXAZOLE AND TRIMETHOPRIM [Concomitant]
     Route: 065
     Dates: end: 20120217
  22. EMEND [Concomitant]
     Route: 065
     Dates: start: 20120204, end: 20120215
  23. SEROTONE [Concomitant]
     Route: 065
     Dates: start: 20120220, end: 20120221
  24. ALBUMIN (HUMAN) [Concomitant]
     Route: 065
     Dates: start: 20120301, end: 20120303
  25. URSO 250 [Concomitant]
     Route: 065
     Dates: end: 20120217
  26. FUNGUARD [Concomitant]
     Route: 065
     Dates: start: 20120218, end: 20120226
  27. PREDNISOLONE [Concomitant]
     Route: 065
     Dates: start: 20120216

REACTIONS (6)
  - FEBRILE NEUTROPENIA [None]
  - ANAEMIA [None]
  - PLATELET COUNT DECREASED [None]
  - WHITE BLOOD CELL COUNT DECREASED [None]
  - HEPATIC FUNCTION ABNORMAL [None]
  - DIARRHOEA [None]
